FAERS Safety Report 9996831 (Version 2)
Quarter: 2014Q2

REPORT INFORMATION
  Report Type: Spontaneous
  Country: US (occurrence: AU)
  Receive Date: 20140311
  Receipt Date: 20140403
  Transmission Date: 20141212
  Serious: Yes (Hospitalization)
  Sender: FDA-Public Use
  Company Number: AU-FRI-1000060368

PATIENT
  Age: 56 Year
  Sex: Male

DRUGS (3)
  1. SAPHRIS [Suspect]
     Indication: POST-TRAUMATIC STRESS DISORDER
     Dosage: 2.5 MG
     Route: 060
  2. SAPHRIS [Suspect]
     Indication: SLEEP DISORDER
  3. SAPHRIS [Suspect]
     Indication: AGITATION

REACTIONS (4)
  - Fall [Unknown]
  - Electrocardiogram repolarisation abnormality [Unknown]
  - Underdose [Recovered/Resolved]
  - Inappropriate schedule of drug administration [Recovered/Resolved]
